FAERS Safety Report 6645594-0 (Version None)
Quarter: 2010Q1

REPORT INFORMATION
  Report Type: 
  Country: None (occurrence: None)
  Receive Date: 20100323
  Receipt Date: 20100225
  Transmission Date: 20100710
  Serious: Yes (Other)
  Sender: FDA-Public Use
  Company Number: IT-RANBAXY-2010RR-32038

PATIENT
  Sex: Male

DRUGS (6)
  1. CIPROFLAXACIN [Suspect]
     Indication: PROPHYLAXIS
     Dosage: 1000 MG, UNK
     Route: 048
     Dates: start: 20100131, end: 20100204
  2. OMEPRAZEN 10 MG MODIFIED RELEASE CAPS [Concomitant]
     Dosage: UNK
  3. IDROQUARK [Concomitant]
     Dosage: UNK
  4. BLOPRESID [Concomitant]
     Dosage: UNK
  5. ESKIM [Concomitant]
     Dosage: UNK
  6. IPERTEN 20 MG TABLETS [Concomitant]
     Dosage: UNK

REACTIONS (5)
  - CONJUNCTIVAL HYPERAEMIA [None]
  - MUCOSAL INFLAMMATION [None]
  - OEDEMA GENITAL [None]
  - SCROTAL OEDEMA [None]
  - STEVENS-JOHNSON SYNDROME [None]
